FAERS Safety Report 23778992 (Version 1)
Quarter: 2024Q2

REPORT INFORMATION
  Report Type: Spontaneous
  Country: DE (occurrence: DE)
  Receive Date: 20240424
  Receipt Date: 20240424
  Transmission Date: 20240716
  Serious: Yes (Other)
  Sender: FDA-Public Use
  Company Number: DE-TEVA-VS-3175314

PATIENT
  Sex: Female

DRUGS (1)
  1. LEVETIRACETAM [Suspect]
     Active Substance: LEVETIRACETAM
     Indication: Product used for unknown indication
     Dosage: 500 MILLIGRAM, QOD
     Route: 048
     Dates: start: 202311

REACTIONS (3)
  - Epilepsy [Unknown]
  - Sleep disorder [Unknown]
  - Anxiety disorder [Unknown]
